FAERS Safety Report 18322499 (Version 1)
Quarter: 2020Q3

REPORT INFORMATION
  Report Type: Spontaneous
  Country: GB (occurrence: GB)
  Receive Date: 20200929
  Receipt Date: 20200929
  Transmission Date: 20201103
  Serious: Yes (Other)
  Sender: FDA-Public Use
  Company Number: GB-TEVA-2020-GB-1831596

PATIENT
  Age: 68 Year
  Sex: Female

DRUGS (2)
  1. LIOTHYRONINE [Suspect]
     Active Substance: LIOTHYRONINE
     Dosage: UNIT DOSE  : 10 MILLIGRAM
     Dates: start: 2017
  2. LEVOTHYROXINE. [Suspect]
     Active Substance: LEVOTHYROXINE
     Dosage: UNIT DOSE : 75 MICROGRAM

REACTIONS (6)
  - Glomerulonephritis [Unknown]
  - Incorrect route of product administration [Unknown]
  - Reaction to excipient [Unknown]
  - Skin exfoliation [Unknown]
  - Psoriasis [Unknown]
  - Lymphoedema [Unknown]
